FAERS Safety Report 12010936 (Version 1)
Quarter: 2016Q1

REPORT INFORMATION
  Report Type: Report from Study
  Country: US (occurrence: US)
  Receive Date: 20160205
  Receipt Date: 20160205
  Transmission Date: 20160526
  Serious: Yes (Other)
  Sender: FDA-Public Use
  Company Number: US-SA-2015SA141429

PATIENT
  Age: 35 Year
  Sex: Male

DRUGS (1)
  1. LEMTRADA [Suspect]
     Active Substance: ALEMTUZUMAB
     Indication: MULTIPLE SCLEROSIS
     Route: 041
     Dates: start: 20150831, end: 20150904

REACTIONS (8)
  - Rash [Not Recovered/Not Resolved]
  - Epistaxis [Recovered/Resolved]
  - Fatigue [Unknown]
  - CD4 lymphocytes decreased [Not Recovered/Not Resolved]
  - Scab [Not Recovered/Not Resolved]
  - Platelet count decreased [Recovering/Resolving]
  - Asthenia [Unknown]
  - Kidney infection [Unknown]

NARRATIVE: CASE EVENT DATE: 2015
